FAERS Safety Report 20652734 (Version 1)
Quarter: 2022Q1

REPORT INFORMATION
  Report Type: Spontaneous
  Country: DK (occurrence: DK)
  Receive Date: 20220330
  Receipt Date: 20220330
  Transmission Date: 20220424
  Serious: Yes (Other)
  Sender: FDA-Public Use
  Company Number: None

PATIENT
  Age: 38 Year
  Sex: Male

DRUGS (5)
  1. PEGFILGRASTIM [Suspect]
     Active Substance: PEGFILGRASTIM
     Indication: Precursor T-lymphoblastic lymphoma/leukaemia
     Dosage: 6 MILLIGRAM, Q3W; RECEIVED ON DAY 7 EVERY 3 WEEKS FOR 4 COURSES
     Route: 058
  2. DARATUMUMAB [Suspect]
     Active Substance: DARATUMUMAB
     Indication: Precursor T-lymphoblastic lymphoma/leukaemia
     Dosage: 16 MILLIGRAM/KILOGRAM, QW; RECEIVED WEEKLY ON DAY 1 FOR 13 WEEKS (TILL THE START?..
     Route: 042
  3. NELARABINE [Suspect]
     Active Substance: NELARABINE
     Indication: Precursor T-lymphoblastic lymphoma/leukaemia
     Dosage: 1500 MILLIGRAM/SQ. METER, Q3W; RECEIVED ON DAYS 1, 3 AND 5 EVERY 3 WEEKS FOR 4 .....
     Route: 065
  4. DEXAMETHASONE [Suspect]
     Active Substance: DEXAMETHASONE
     Indication: Precursor T-lymphoblastic lymphoma/leukaemia
     Dosage: 40 MILLIGRAM, Q3W; RECEIVED ON DAYS 1-4 EVERY 3 WEEKS FOR 4 COURSES
     Route: 065
  5. PEGASPARGASE [Suspect]
     Active Substance: PEGASPARGASE
     Indication: Precursor T-lymphoblastic lymphoma/leukaemia
     Dosage: 1000 MILLIGRAM/SQ. METER, Q3W; RECEIVED ON DAY 1 EVERY 3 WEEKS FOR 4 COURSES
     Route: 030

REACTIONS (4)
  - Myelosuppression [Not Recovered/Not Resolved]
  - Febrile neutropenia [Unknown]
  - Peripheral sensory neuropathy [Not Recovered/Not Resolved]
  - Asthenia [Unknown]
